FAERS Safety Report 19174495 (Version 2)
Quarter: 2021Q2

REPORT INFORMATION
  Report Type: Spontaneous
  Country: US (occurrence: US)
  Receive Date: 20210423
  Receipt Date: 20210606
  Transmission Date: 20210717
  Serious: Yes (Other)
  Sender: FDA-Public Use
  Company Number: US-TEVA-2021-US-1902736

PATIENT
  Sex: Male

DRUGS (2)
  1. PROPRANOLOL HYDROCHLORIDE. [Suspect]
     Active Substance: PROPRANOLOL HYDROCHLORIDE
     Indication: HYPERTENSION
     Dosage: MADE AVAILABLE IN A 40 OR 45MG DOSE
     Route: 065
  2. PROPRANOLOL HYDROCHLORIDE. [Suspect]
     Active Substance: PROPRANOLOL HYDROCHLORIDE
     Indication: ANXIETY

REACTIONS (8)
  - Erectile dysfunction [Unknown]
  - Therapy interrupted [Unknown]
  - Poor peripheral circulation [Unknown]
  - Wrong technique in product usage process [Unknown]
  - Blood pressure decreased [Unknown]
  - Dyspnoea [Unknown]
  - Blood pressure increased [Unknown]
  - Heart rate decreased [Unknown]
